FAERS Safety Report 4636355-2 (Version None)
Quarter: 2005Q2

REPORT INFORMATION
  Report Type: 
  Country: None (occurrence: None)
  Receive Date: 20050415
  Receipt Date: 20050111
  Transmission Date: 20051028
  Serious: Yes (Other)
  Sender: FDA-Public Use
  Company Number: US-BRISTOL-MYERS SQUIBB COMPANY-12820973

PATIENT
  Age: 54 Year
  Sex: Female

DRUGS (2)
  1. PARAPLATIN [Suspect]
  2. TAXOL [Concomitant]

REACTIONS (1)
  - ADVERSE DRUG REACTION [None]
